FAERS Safety Report 9681152 (Version 1)
Quarter: 2013Q4

REPORT INFORMATION
  Report Type: Spontaneous
  Country: US (occurrence: US)
  Receive Date: 20131111
  Receipt Date: 20131111
  Transmission Date: 20140711
  Serious: No
  Sender: FDA-Public Use
  Company Number: US-ENDO PHARMACEUTICALS INC.-MECL20120002

PATIENT
  Age: 43 Year
  Sex: Female

DRUGS (1)
  1. MECLIZINE HYDROCHLORIDE TABLETS 25MG [Suspect]
     Indication: VERTIGO
     Dosage: 25 MG
     Route: 048

REACTIONS (1)
  - Malaise [Unknown]
